FAERS Safety Report 4479436-9 (Version None)
Quarter: 2004Q4

REPORT INFORMATION
  Report Type: 
  Country: None (occurrence: None)
  Receive Date: 20041015
  Receipt Date: 20041001
  Transmission Date: 20050328
  Serious: Yes (Hospitalization)
  Sender: FDA-Public Use
  Company Number: 2004237215FR

PATIENT
  Age: 51 Year
  Sex: Male

DRUGS (3)
  1. SOLU-MEDROL [Suspect]
     Indication: MUSCULOSKELETAL PAIN
     Dosage: SEE IMAGE
     Route: 042
     Dates: start: 20040701, end: 20040702
  2. DELTASONE [Suspect]
     Indication: ARTHRITIS
     Dosage: 15 MG, QD, ORAL
     Route: 048
  3. METHOBLASTIN (METHOTREXATE) TABLET [Suspect]
     Indication: ARTHRITIS
     Dosage: 12.5 MG, WEEKLY, ORAL
     Route: 048

REACTIONS (4)
  - BACTERIAL INFECTION [None]
  - DRUG INTERACTION [None]
  - ERYSIPELAS [None]
  - SKIN INFECTION [None]
